FAERS Safety Report 8829931 (Version 3)
Quarter: 2012Q4

REPORT INFORMATION
  Report Type: 
  Country: DK (occurrence: DE)
  Receive Date: 20121008
  Receipt Date: 20121017
  Transmission Date: 20130627
  Serious: Yes (Other)
  Sender: FDA-Public Use
  Company Number: DE-FRI-1000039241

PATIENT
  Age: 54 Year
  Sex: Female

DRUGS (3)
  1. CITALOPRAM [Suspect]
  2. AMITRIPTYLINE [Suspect]
  3. SEROQUEL [Suspect]

REACTIONS (2)
  - Conjunctival haemorrhage [Recovered/Resolved]
  - Epistaxis [Recovered/Resolved]
